FAERS Safety Report 5334740-7 (Version None)
Quarter: 2007Q1

REPORT INFORMATION
  Report Type: 
  Country: None (occurrence: None)
  Receive Date: 20070306
  Receipt Date: 20060809
  Transmission Date: 20070707
  Serious: Yes (Hospitalization)
  Sender: FDA-Public Use
  Company Number: A03200605102

PATIENT
  Age: 75 Year
  Sex: Female
  Weight: 70.29 kg

DRUGS (6)
  1. PLAVIX [Suspect]
     Indication: STENT PLACEMENT
     Dosage: 75 MG QD - ORAL
     Route: 048
     Dates: start: 20051101
  2. GLYCERYL TRINITRATE [Concomitant]
  3. GLYBURIDE [Concomitant]
  4. PIOGLITAZONE HCL [Concomitant]
  5. LOTREL [Concomitant]
  6. EZETIMIBE [Concomitant]

REACTIONS (2)
  - ABDOMINAL PAIN UPPER [None]
  - JOINT SWELLING [None]
